FAERS Safety Report 15646171 (Version 1)
Quarter: 2018Q4

REPORT INFORMATION
  Report Type: Spontaneous
  Country: JP (occurrence: JP)
  Receive Date: 20181121
  Receipt Date: 20181121
  Transmission Date: 20190205
  Serious: Yes (Other)
  Sender: FDA-Public Use
  Company Number: JP-009507513-1811JPN001826J

PATIENT
  Sex: Male

DRUGS (1)
  1. NU-LOTAN TABLETS 50MG [Suspect]
     Active Substance: LOSARTAN
     Dosage: UNK
     Route: 048

REACTIONS (7)
  - Maculopathy [Unknown]
  - Wrong product administered [Unknown]
  - Ocular hyperaemia [Recovering/Resolving]
  - Diabetes mellitus [Unknown]
  - Accommodation disorder [Unknown]
  - Dizziness [Unknown]
  - Product packaging confusion [Unknown]
